FAERS Safety Report 10775357 (Version 1)
Quarter: 2015Q1

REPORT INFORMATION
  Report Type: Spontaneous
  Country: US (occurrence: None)
  Receive Date: 20150205
  Receipt Date: 20150205
  Transmission Date: 20150721
  Serious: No
  Sender: FDA-Public Use
  Company Number: 2523595-2015-00029

PATIENT
  Age: 84 Year
  Sex: Female
  Weight: 48.63 kg

DRUGS (1)
  1. UVADEX [Suspect]
     Active Substance: METHOXSALEN
     Indication: MYCOSIS FUNGOIDES
     Dates: start: 20150119

REACTIONS (4)
  - Peripheral swelling [None]
  - Angioedema [None]
  - Lip swelling [None]
  - Eye swelling [None]

NARRATIVE: CASE EVENT DATE: 20140120
